FAERS Safety Report 6565878-4 (Version None)
Quarter: 2010Q1

REPORT INFORMATION
  Report Type: 
  Country: None (occurrence: None)
  Receive Date: 20100126
  Receipt Date: 20100114
  Transmission Date: 20100710
  Serious: Yes (Hospitalization)
  Sender: FDA-Public Use
  Company Number: 2010SP002910

PATIENT
  Age: 34 Year
  Sex: Male

DRUGS (4)
  1. MIRTAZAPINE [Suspect]
     Indication: DEPRESSION
     Dosage: ; PO
     Route: 048
     Dates: start: 20090201, end: 20090411
  2. CYMBALTA [Suspect]
     Indication: DEPRESSION
     Dosage: ; PO
     Route: 048
     Dates: start: 20090201, end: 20090411
  3. FLURAZEPAM DIHYDROCHLORIDE (FLURAZEPAM DIHYDROCHLORIDE /00246102/) [Suspect]
     Indication: DEPRESSION
     Dates: start: 20090201, end: 20090411
  4. AKINETON [Concomitant]

REACTIONS (3)
  - AGITATION [None]
  - SOPOR [None]
  - SUICIDAL IDEATION [None]
